FAERS Safety Report 4342649-0 (Version None)
Quarter: 2004Q1

REPORT INFORMATION
  Report Type: 
  Country: None (occurrence: None)
  Receive Date: 20040213
  Receipt Date: 20031105
  Transmission Date: 20041129
  Serious: No
  Sender: FDA-Public Use
  Company Number: 350936

PATIENT
  Age: 48 Year
  Sex: Female

DRUGS (2)
  1. PEGASYS [Suspect]
     Dosage: SUBCUTANEOUS
     Route: 058
  2. COPEGUS [Suspect]
     Dosage: 1000 MG DAILY 2 PER DAY, ORAL
     Route: 048

REACTIONS (1)
  - ANAEMIA [None]
